FAERS Safety Report 19769343 (Version 1)
Quarter: 2021Q3

REPORT INFORMATION
  Report Type: Spontaneous
  Country: US (occurrence: US)
  Receive Date: 20210827
  Receipt Date: 20210827
  Transmission Date: 20211014
  Serious: No
  Sender: FDA-Public Use
  Company Number: None

PATIENT
  Age: 12 Year
  Sex: Male

DRUGS (1)
  1. HUMIRA [Suspect]
     Active Substance: ADALIMUMAB
     Dosage: ?          OTHER DOSE:1 PEN;OTHER FREQUENCY:N/A;?
     Route: 058
     Dates: start: 202102

REACTIONS (2)
  - Rash [None]
  - Bone lesion [None]

NARRATIVE: CASE EVENT DATE: 20210827
